FAERS Safety Report 24904457 (Version 2)
Quarter: 2025Q1

REPORT INFORMATION
  Report Type: Spontaneous
  Country: DE (occurrence: DE)
  Receive Date: 20250130
  Receipt Date: 20250213
  Transmission Date: 20250408
  Serious: Yes (Life-Threatening, Hospitalization)
  Sender: TEVA
  Company Number: DE-TEVA-VS-3290414

PATIENT
  Age: 69 Year
  Sex: Male

DRUGS (3)
  1. VALGANCICLOVIR [Suspect]
     Active Substance: VALGANCICLOVIR
     Indication: Antiviral prophylaxis
     Route: 065
  2. CINACALCET [Suspect]
     Active Substance: CINACALCET
     Indication: Hyperparathyroidism tertiary
     Route: 065
  3. COTRIMOXAZOLE [Suspect]
     Active Substance: SULFAMETHOXAZOLE\TRIMETHOPRIM
     Indication: Antibiotic prophylaxis
     Route: 065

REACTIONS (3)
  - Myelosuppression [Unknown]
  - Myelodysplastic syndrome with single lineage dysplasia [Unknown]
  - Drug ineffective [Unknown]
